FAERS Safety Report 5292625-9 (Version None)
Quarter: 2007Q2

REPORT INFORMATION
  Report Type: 
  Country: None (occurrence: None)
  Receive Date: 20070404
  Receipt Date: 20070323
  Transmission Date: 20071010
  Serious: Yes (Other)
  Sender: FDA-Public Use
  Company Number: 2007SP005429

PATIENT
  Age: 5 Year
  Sex: Male
  Weight: 19 kg

DRUGS (1)
  1. DESLORATADINE [Suspect]
     Indication: ANGIOEDEMA
     Dosage: 1.2 MG; QD; PO
     Route: 048
     Dates: start: 20070205, end: 20070212

REACTIONS (7)
  - ABASIA [None]
  - COORDINATION ABNORMAL [None]
  - DIARRHOEA [None]
  - DYSTONIA [None]
  - MYALGIA [None]
  - TRISMUS [None]
  - VOMITING [None]
